FAERS Safety Report 4468135-5 (Version None)
Quarter: 2004Q4

REPORT INFORMATION
  Report Type: 
  Country: None (occurrence: None)
  Receive Date: 20041004
  Receipt Date: 20041004
  Transmission Date: 20050328
  Serious: Yes (Life-Threatening, Hospitalization)
  Sender: FDA-Public Use
  Company Number: None

PATIENT
  Age: 54 Year
  Sex: Male
  Weight: 122.4712 kg

DRUGS (1)
  1. VIOXX [Suspect]

REACTIONS (2)
  - CHEST PAIN [None]
  - CORONARY ARTERY THROMBOSIS [None]
